FAERS Safety Report 15121765 (Version 1)
Quarter: 2018Q3

REPORT INFORMATION
  Report Type: Spontaneous
  Country: US (occurrence: US)
  Receive Date: 20180709
  Receipt Date: 20180709
  Transmission Date: 20181010
  Serious: Yes (Disabling)
  Sender: FDA-Public Use
  Company Number: US-OTSUKA-2018_015854

PATIENT
  Sex: Female

DRUGS (2)
  1. ABILIFY [Suspect]
     Active Substance: ARIPIPRAZOLE
     Indication: MAJOR DEPRESSION
  2. ABILIFY [Suspect]
     Active Substance: ARIPIPRAZOLE
     Indication: ANXIETY
     Dosage: 5 MG, QD
     Route: 065
     Dates: start: 2012, end: 2017

REACTIONS (11)
  - Condition aggravated [Unknown]
  - Injury [Unknown]
  - Eating disorder [Recovered/Resolved]
  - Emotional distress [Unknown]
  - Product use in unapproved indication [Unknown]
  - Compulsive shopping [Recovered/Resolved]
  - Anxiety [Unknown]
  - Disability [Unknown]
  - Economic problem [Unknown]
  - Anhedonia [Unknown]
  - Pain [Unknown]

NARRATIVE: CASE EVENT DATE: 2012
